FAERS Safety Report 21395236 (Version 3)
Quarter: 2023Q2

REPORT INFORMATION
  Report Type: Spontaneous
  Country: US (occurrence: US)
  Receive Date: 20220930
  Receipt Date: 20230628
  Transmission Date: 20230721
  Serious: Yes (Other)
  Sender: FDA-Public Use
  Company Number: None

PATIENT
  Sex: Female

DRUGS (2)
  1. VERAPAMIL [Suspect]
     Active Substance: VERAPAMIL HYDROCHLORIDE
     Indication: Supraventricular tachycardia
     Dosage: POTENCY 240 MG
     Dates: start: 202207
  2. VERAPAMIL [Suspect]
     Active Substance: VERAPAMIL HYDROCHLORIDE
     Indication: Supraventricular tachycardia
     Dosage: POTENCY 240 MG
     Dates: start: 202207

REACTIONS (4)
  - Dizziness [Unknown]
  - Blood pressure decreased [Recovering/Resolving]
  - Product substitution issue [Unknown]
  - Loss of consciousness [Unknown]
